FAERS Safety Report 9047379 (Version 1)
Quarter: 2013Q1

REPORT INFORMATION
  Report Type: Spontaneous
  Country: US (occurrence: US)
  Receive Date: 20130201
  Receipt Date: 20130201
  Transmission Date: 20140127
  Serious: No
  Sender: FDA-Public Use
  Company Number: US-ABBOTT-12P-163-1025021-00

PATIENT
  Sex: Male
  Weight: 95.34 kg

DRUGS (17)
  1. HUMIRA [Suspect]
     Indication: CROHN^S DISEASE
  2. HUMIRA [Suspect]
     Indication: ARTHRITIS
  3. RANITIDINE [Concomitant]
     Indication: GASTROOESOPHAGEAL REFLUX DISEASE
  4. CEPHALEXIN [Concomitant]
     Indication: CROHN^S DISEASE
  5. CALCITRIOL [Concomitant]
     Indication: SUPPLEMENTATION THERAPY
  6. POTASSIUM [Concomitant]
     Indication: SUPPLEMENTATION THERAPY
  7. SIMVASTATIN [Concomitant]
     Indication: BLOOD CHOLESTEROL INCREASED
  8. FERROUS SULFATE [Concomitant]
     Indication: BLOOD IRON DECREASED
  9. FOLIC ACID [Concomitant]
     Indication: SUPPLEMENTATION THERAPY
  10. AMLODIPINE [Concomitant]
     Indication: HYPERTENSION
  11. BENAZEPRIL [Concomitant]
     Indication: HYPERTENSION
  12. TRAMADOL [Concomitant]
     Indication: PAIN
     Dosage: RARELY TAKES
  13. PREDNISONE [Concomitant]
     Indication: CROHN^S DISEASE
     Dosage: WEANING
  14. VITAMIN D NOS [Concomitant]
     Indication: VITAMIN SUPPLEMENTATION
  15. VITAMIN B12 [Concomitant]
     Indication: VITAMIN SUPPLEMENTATION
  16. ASPIRIN [Concomitant]
     Indication: PRODUCT USED FOR UNKNOWN INDICATION
  17. METAMUCIL [Concomitant]
     Indication: CONSTIPATION

REACTIONS (3)
  - Feeling abnormal [Not Recovered/Not Resolved]
  - Abdominal discomfort [Not Recovered/Not Resolved]
  - Drug effect decreased [Not Recovered/Not Resolved]
